FAERS Safety Report 20891089 (Version 1)
Quarter: 2022Q2

REPORT INFORMATION
  Report Type: Spontaneous
  Country: US (occurrence: US)
  Receive Date: 20220530
  Receipt Date: 20220530
  Transmission Date: 20220721
  Serious: No
  Sender: FDA-Public Use
  Company Number: US-BRISTOL-MYERS SQUIBB COMPANY-2022-031742

PATIENT
  Age: 74 Year
  Sex: Male
  Weight: 96.16 kg

DRUGS (28)
  1. REVLIMID [Suspect]
     Active Substance: LENALIDOMIDE
     Indication: Plasma cell myeloma
     Dosage: FREQ:ONCE DAILY ?21 DAYS THEN 7 DAYS OFF.
     Route: 048
     Dates: start: 20220331
  2. THEOPHYLLINE [Concomitant]
     Active Substance: THEOPHYLLINE
  3. LISINOPRIL [Concomitant]
     Active Substance: LISINOPRIL
  4. ASPIRIN [Concomitant]
     Active Substance: ASPIRIN
  5. DEXAMETHASONE [Concomitant]
     Active Substance: DEXAMETHASONE
     Dosage: TAKE 5 TABLETS BY MOUTH WEEKLY ON DAYS 1,8,15, AND 22
  6. ANORO ELLIPTA [Concomitant]
     Active Substance: UMECLIDINIUM BROMIDE\VILANTEROL TRIFENATATE
  7. AZELASTINE [Concomitant]
     Active Substance: AZELASTINE
  8. BUMETANIDE [Concomitant]
     Active Substance: BUMETANIDE
  9. CARVEDILOL [Concomitant]
     Active Substance: CARVEDILOL
  10. CLARITIN-D NOS [Concomitant]
     Active Substance: LORATADINE\PSEUDOEPHEDRINE SULFATE
  11. DIAZEPAM [Concomitant]
     Active Substance: DIAZEPAM
  12. ENTRESTO [Concomitant]
     Active Substance: SACUBITRIL\VALSARTAN
  13. EPLERENONE [Concomitant]
     Active Substance: EPLERENONE
  14. GABAPENTIN [Concomitant]
     Active Substance: GABAPENTIN
  15. GAVISCON [MAGNESIUM ALGINATE;SODIUM ALGINATE] [Concomitant]
  16. GLIMEPIRIDE [Concomitant]
     Active Substance: GLIMEPIRIDE
  17. HUMALOG [Concomitant]
     Active Substance: INSULIN LISPRO
  18. LEVOCETIRIZINE [Concomitant]
     Active Substance: LEVOCETIRIZINE
  19. LINZESS [Concomitant]
     Active Substance: LINACLOTIDE
  20. LORAZEPAM [Concomitant]
     Active Substance: LORAZEPAM
  21. MELOXICAM [Concomitant]
     Active Substance: MELOXICAM
  22. MUCINEX [Concomitant]
     Active Substance: GUAIFENESIN
  23. NAPROXEN [Concomitant]
     Active Substance: NAPROXEN
  24. ONDANSETRON [Concomitant]
     Active Substance: ONDANSETRON
  25. SUCRALFATE [Concomitant]
     Active Substance: SUCRALFATE
  26. TEMAZEPAM [Concomitant]
     Active Substance: TEMAZEPAM
  27. TRESIBA [Concomitant]
     Active Substance: INSULIN DEGLUDEC
  28. TYLENOL [Concomitant]
     Active Substance: ACETAMINOPHEN

REACTIONS (2)
  - Nausea [Unknown]
  - Pain [Unknown]

NARRATIVE: CASE EVENT DATE: 20220401
